FAERS Safety Report 23304956 (Version 2)
Quarter: 2024Q1

REPORT INFORMATION
  Report Type: Report from Study
  Country: GB (occurrence: GB)
  Receive Date: 20231218
  Receipt Date: 20240308
  Transmission Date: 20240410
  Serious: Yes (Other)
  Sender: FDA-Public Use
  Company Number: GB-002147023-NVSC2023GB127135

PATIENT
  Age: 53 Year
  Sex: Male

DRUGS (2)
  1. MAYZENT [Suspect]
     Active Substance: SIPONIMOD
     Indication: Secondary progressive multiple sclerosis
     Dosage: 0.25 MG, QD (ONE SINGLE DOSE)
     Route: 048
     Dates: start: 20230601
  2. MAYZENT [Suspect]
     Active Substance: SIPONIMOD
     Dosage: 2 MG, QD
     Route: 048

REACTIONS (15)
  - Bradycardia [Unknown]
  - Headache [Recovered/Resolved]
  - Mobility decreased [Recovering/Resolving]
  - Visual impairment [Not Recovered/Not Resolved]
  - Abnormal sensation in eye [Not Recovered/Not Resolved]
  - Eczema [Unknown]
  - Muscle spasms [Recovering/Resolving]
  - Chills [Recovering/Resolving]
  - Temperature regulation disorder [Recovering/Resolving]
  - Nasal congestion [Recovering/Resolving]
  - Peripheral swelling [Not Recovered/Not Resolved]
  - Musculoskeletal chest pain [Recovering/Resolving]
  - Cough [Recovering/Resolving]
  - Pain in extremity [Recovering/Resolving]
  - Melanocytic naevus [Unknown]

NARRATIVE: CASE EVENT DATE: 20230601
